FAERS Safety Report 4863179-3 (Version None)
Quarter: 2005Q4

REPORT INFORMATION
  Report Type: 
  Country: None (occurrence: None)
  Receive Date: 20051201
  Receipt Date: 20050721
  Transmission Date: 20060501
  Serious: No
  Sender: FDA-Public Use
  Company Number: 2005PV000511

PATIENT
  Age: 39 Year
  Sex: Female
  Weight: 124.2856 kg

DRUGS (10)
  1. BYETTA [Suspect]
     Indication: DIABETES MELLITUS NON-INSULIN-DEPENDENT
     Dosage: 5 MCG;SC
     Route: 058
     Dates: start: 20050720
  2. HUMULIN R [Concomitant]
  3. LANTUS [Concomitant]
  4. DDAVP [Concomitant]
  5. GLUCOPHAGE [Concomitant]
  6. HALOPERIDOL [Concomitant]
  7. DEPAKOTE [Concomitant]
  8. TEGASEROD [Concomitant]
  9. LORATADINE [Concomitant]
  10. BENZATROPINE [Concomitant]

REACTIONS (2)
  - DIARRHOEA [None]
  - FAECES DISCOLOURED [None]
